FAERS Safety Report 19795418 (Version 1)
Quarter: 2021Q3

REPORT INFORMATION
  Report Type: Spontaneous
  Country: US (occurrence: US)
  Receive Date: 20210901
  Receipt Date: 20210901
  Transmission Date: 20211014
  Serious: No
  Sender: FDA-Public Use
  Company Number: None

PATIENT
  Sex: Female

DRUGS (1)
  1. TACROLIMUS (STRIDES) 1MG STRIDES PHARMA [Suspect]
     Active Substance: TACROLIMUS
     Indication: RENAL TRANSPLANT
     Route: 048
     Dates: start: 201512

REACTIONS (7)
  - Chills [None]
  - Pyrexia [None]
  - Nausea [None]
  - COVID-19 [None]
  - Vomiting [None]
  - Urinary tract infection [None]
  - Adverse drug reaction [None]
